FAERS Safety Report 9425732 (Version 1)
Quarter: 2013Q3

REPORT INFORMATION
  Report Type: Report from Study
  Country: US (occurrence: US)
  Receive Date: 20130729
  Receipt Date: 20130729
  Transmission Date: 20140515
  Serious: Yes (Hospitalization)
  Sender: FDA-Public Use
  Company Number: US-US-EMD SERONO, INC.-7226377

PATIENT
  Sex: Female

DRUGS (3)
  1. REBIF [Suspect]
     Indication: PRODUCT USED FOR UNKNOWN INDICATION
     Route: 058
     Dates: start: 20051221, end: 20060112
  2. REBIF [Suspect]
     Route: 058
     Dates: start: 20120117, end: 20130531
  3. REBIF [Suspect]
     Route: 058
     Dates: start: 20130708

REACTIONS (4)
  - Hiatus hernia [Recovering/Resolving]
  - Liver function test abnormal [Unknown]
  - Pain [Unknown]
  - Injection site erythema [Not Recovered/Not Resolved]
